FAERS Safety Report 5529772-X (Version None)
Quarter: 2007Q4

REPORT INFORMATION
  Report Type: 
  Country: None (occurrence: None)
  Receive Date: 20071129
  Receipt Date: 20070509
  Transmission Date: 20080405
  Serious: No
  Sender: FDA-Public Use
  Company Number: US-ABBOTT-07P-163-0367329-00

PATIENT
  Sex: Female
  Weight: 109 kg

DRUGS (10)
  1. MERIDIA [Suspect]
     Indication: WEIGHT CONTROL
     Route: 048
     Dates: start: 20070430, end: 20070503
  2. ATENOLOL [Concomitant]
     Indication: HYPERTENSION
     Route: 048
  3. ACTOS [Concomitant]
     Indication: DIABETES MELLITUS
     Route: 048
  4. FENOFIBRATE [Concomitant]
     Indication: HYPERLIPIDAEMIA
     Route: 048
  5. POTASSIUM CHLORIDE [Concomitant]
     Indication: MINERAL SUPPLEMENTATION
     Route: 048
  6. VITAMIN CAP [Concomitant]
     Indication: VITAMIN SUPPLEMENTATION
     Route: 048
  7. CLARINEX [Concomitant]
     Indication: HYPERSENSITIVITY
     Route: 048
  8. PSEUDOEPHEDRINE HYDROCHLORIDE [Concomitant]
     Indication: HYPERSENSITIVITY
     Route: 048
  9. IBUPROFEN [Concomitant]
     Indication: HEADACHE
     Route: 048
  10. AMILORIDE HYDROCHLORIDE [Concomitant]
     Indication: DIURETIC THERAPY
     Route: 048

REACTIONS (4)
  - ABNORMAL SENSATION IN EYE [None]
  - DRY MOUTH [None]
  - FATIGUE [None]
  - HEADACHE [None]
